FAERS Safety Report 4537625-9 (Version None)
Quarter: 2004Q4

REPORT INFORMATION
  Report Type: 
  Country: None (occurrence: None)
  Receive Date: 20041221
  Receipt Date: 20041026
  Transmission Date: 20050328
  Serious: Yes (Death, Life-Threatening, Hospitalization, Other)
  Sender: FDA-Public Use
  Company Number: A-US2003-02864

PATIENT
  Age: 64 Year
  Sex: Male
  Weight: 77.6 kg

DRUGS (13)
  1. TRACLEER [Suspect]
     Indication: PULMONARY HYPERTENSION
     Dosage: 125 MG, BID, ORAL
     Route: 048
  2. PRAVACHOL [Concomitant]
  3. NORVASC [Concomitant]
  4. ADVAIR (SALMETEROL XINAFOATE) [Concomitant]
  5. LORAZEPAM [Concomitant]
  6. KLOR-CON [Concomitant]
  7. ISOSORBIDE MONONITRATE [Concomitant]
  8. FUROSEMIDE [Concomitant]
  9. VITAMIN B6 [Concomitant]
  10. VITAMIN B12 [Concomitant]
  11. FOLIC ACID [Concomitant]
  12. VITAMIN C (ASCORBIC ACID) [Concomitant]
  13. ASPIRIN [Concomitant]

REACTIONS (5)
  - DEATH [None]
  - DIZZINESS [None]
  - DYSPNOEA [None]
  - OEDEMA PERIPHERAL [None]
  - RIGHT VENTRICULAR FAILURE [None]
